FAERS Safety Report 17721737 (Version 1)
Quarter: 2020Q2

REPORT INFORMATION
  Report Type: Spontaneous
  Country: FR (occurrence: FR)
  Receive Date: 20200429
  Receipt Date: 20200429
  Transmission Date: 20200714
  Serious: Yes (Life-Threatening, Hospitalization, Other)
  Sender: FDA-Public Use
  Company Number: FR-CHEPLA-C20201345

PATIENT
  Age: 26 Year
  Sex: Female
  Weight: 54.6 kg

DRUGS (25)
  1. CYMEVAN [Suspect]
     Active Substance: GANCICLOVIR
     Indication: CYTOMEGALOVIRUS INFECTION
     Dosage: 320 MG, BID
     Dates: start: 20180914
  2. DEFITELIO [Suspect]
     Active Substance: DEFIBROTIDE SODIUM
     Indication: VENOOCCLUSIVE LIVER DISEASE
     Dosage: 24.6 MG/KG, QD
     Route: 042
     Dates: start: 20180922, end: 20181008
  3. FOLINATE DE CALCIUM [Concomitant]
     Active Substance: LEUCOVORIN CALCIUM
     Indication: PRODUCT USED FOR UNKNOWN INDICATION
  4. IMOVANE [Concomitant]
     Active Substance: ZOPICLONE
     Indication: PRODUCT USED FOR UNKNOWN INDICATION
  5. FUNGIZONE [Concomitant]
     Active Substance: AMPHOTERICIN B
     Indication: PRODUCT USED FOR UNKNOWN INDICATION
  6. PREDNISONE. [Concomitant]
     Active Substance: PREDNISONE
     Indication: PRODUCT USED FOR UNKNOWN INDICATION
  7. CASPOFUNGIN [Suspect]
     Active Substance: CASPOFUNGIN
  8. NEORAL [Concomitant]
     Active Substance: CYCLOSPORINE
     Indication: PRODUCT USED FOR UNKNOWN INDICATION
     Dates: end: 20180925
  9. CHOLURSO [Concomitant]
     Active Substance: URSODIOL
     Indication: PRODUCT USED FOR UNKNOWN INDICATION
  10. MYCOPHENOLATE MOFETIL. [Concomitant]
     Active Substance: MYCOPHENOLATE MOFETIL
     Indication: PRODUCT USED FOR UNKNOWN INDICATION
     Dates: end: 20180925
  11. EUPANTOL [Concomitant]
     Active Substance: PANTOPRAZOLE SODIUM
     Indication: PRODUCT USED FOR UNKNOWN INDICATION
  12. SODIUM CHLORIDE. [Concomitant]
     Active Substance: SODIUM CHLORIDE
     Indication: PRODUCT USED FOR UNKNOWN INDICATION
     Dates: end: 20180926
  13. TAZOCILLINE [Suspect]
     Active Substance: PIPERACILLIN SODIUM\TAZOBACTAM SODIUM
  14. ONDANSETRON [Concomitant]
     Active Substance: ONDANSETRON
     Indication: PRODUCT USED FOR UNKNOWN INDICATION
  15. DEFITELIO [Suspect]
     Active Substance: DEFIBROTIDE SODIUM
     Dosage: 25 MG/KG, QD
     Route: 042
     Dates: start: 2018, end: 20181008
  16. MORPHINE [Concomitant]
     Active Substance: MORPHINE
     Indication: PRODUCT USED FOR UNKNOWN INDICATION
  17. OXYBUTYNIN. [Concomitant]
     Active Substance: OXYBUTYNIN CHLORIDE
     Indication: PRODUCT USED FOR UNKNOWN INDICATION
  18. SOLU-MEDROL [Concomitant]
     Active Substance: METHYLPREDNISOLONE SODIUM SUCCINATE
     Indication: PRODUCT USED FOR UNKNOWN INDICATION
     Dates: end: 20180925
  19. LASILIX [Concomitant]
     Active Substance: FUROSEMIDE
  20. ACUPAN [Concomitant]
     Active Substance: NEFOPAM HYDROCHLORIDE
     Indication: PRODUCT USED FOR UNKNOWN INDICATION
     Dates: start: 20180922
  21. PHYTOMENADIONE [Concomitant]
     Active Substance: PHYTONADIONE
     Indication: PRODUCT USED FOR UNKNOWN INDICATION
  22. PANTOPRAZOLE [Concomitant]
     Active Substance: PANTOPRAZOLE
     Indication: PRODUCT USED FOR UNKNOWN INDICATION
  23. ALBUNORM [Concomitant]
     Active Substance: ALBUMIN HUMAN
     Indication: PRODUCT USED FOR UNKNOWN INDICATION
     Dates: end: 20180927
  24. NOXAFIL [Concomitant]
     Active Substance: POSACONAZOLE
     Indication: PRODUCT USED FOR UNKNOWN INDICATION
  25. VANCOMYCIN [Suspect]
     Active Substance: VANCOMYCIN

REACTIONS (19)
  - Pancytopenia [Recovering/Resolving]
  - Chronic graft versus host disease [Unknown]
  - Acute pulmonary oedema [Unknown]
  - Pulmonary veno-occlusive disease [Unknown]
  - Acute respiratory distress syndrome [Unknown]
  - Haemophagocytic lymphohistiocytosis [Unknown]
  - Tachycardia [Unknown]
  - Weight increased [Unknown]
  - Hepatitis [Unknown]
  - Transplantation complication [Recovered/Resolved]
  - Epstein-Barr virus infection [Unknown]
  - Acute kidney injury [Unknown]
  - Abdominal distension [Unknown]
  - Enterobacter infection [Not Recovered/Not Resolved]
  - Haematuria [Recovering/Resolving]
  - Multiple organ dysfunction syndrome [Recovered/Resolved]
  - Cough [Unknown]
  - Ocular icterus [Unknown]
  - Escherichia infection [Recovering/Resolving]

NARRATIVE: CASE EVENT DATE: 2018
